FAERS Safety Report 9203070 (Version 2)
Quarter: 2013Q2

REPORT INFORMATION
  Report Type: Spontaneous
  Country: AU (occurrence: AU)
  Receive Date: 20130402
  Receipt Date: 20130605
  Transmission Date: 20140414
  Serious: Yes (Hospitalization)
  Sender: FDA-Public Use
  Company Number: AU-009507513-1304AUS000124

PATIENT
  Sex: 0

DRUGS (3)
  1. VICTRELIS 200 MG [Suspect]
     Indication: HEPATITIS C
     Dosage: UNK
     Route: 048
  2. VICTRELIS 200 MG [Suspect]
     Indication: LIVER DISORDER
  3. INTERFERON (UNSPECIFIED) [Suspect]
     Indication: HEPATITIS C

REACTIONS (3)
  - Myalgia [Unknown]
  - Pyrexia [Unknown]
  - Sepsis [Unknown]
